FAERS Safety Report 12191093 (Version 8)
Quarter: 2017Q2

REPORT INFORMATION
  Report Type: Spontaneous
  Country: US (occurrence: US)
  Receive Date: 20160318
  Receipt Date: 20170629
  Transmission Date: 20170830
  Serious: Yes (Hospitalization)
  Sender: FDA-Public Use
  Company Number: US-JNJFOC-20160112817

PATIENT
  Sex: Male
  Weight: 89.81 kg

DRUGS (8)
  1. RISPERDAL [Suspect]
     Active Substance: RISPERIDONE
     Indication: SCHIZOPHRENIA
     Dosage: STOPPED 3-4-YEARS BEFORE, FREQUENCY ONCE OR TWICE DAILY
     Route: 048
  2. RISPERDAL CONSTA [Suspect]
     Active Substance: RISPERIDONE
     Indication: SCHIZOPHRENIA
     Route: 030
     Dates: start: 2002, end: 2016
  3. IBUPROFEN. [Concomitant]
     Active Substance: IBUPROFEN
     Indication: NECK PAIN
     Dosage: OVER THE COUNTER
     Route: 065
  4. TYLENOL [Concomitant]
     Active Substance: ACETAMINOPHEN
     Indication: PAIN
     Route: 065
  5. VIOXX [Concomitant]
     Active Substance: ROFECOXIB
     Indication: ARTHRITIS
     Route: 065
  6. RISPERIDONE. [Suspect]
     Active Substance: RISPERIDONE
     Indication: SCHIZOPHRENIA
     Dosage: SINCE 15-20 YEARS
     Route: 048
     Dates: end: 2016
  7. LIPITOR [Concomitant]
     Active Substance: ATORVASTATIN CALCIUM
     Indication: BLOOD CHOLESTEROL INCREASED
     Route: 065
  8. IBUPROFEN. [Concomitant]
     Active Substance: IBUPROFEN
     Indication: BACK PAIN
     Dosage: OVER THE COUNTER
     Route: 065

REACTIONS (21)
  - Road traffic accident [Unknown]
  - Paranoia [Unknown]
  - Unevaluable event [Unknown]
  - Asthenia [Unknown]
  - Skull fracture [Unknown]
  - Head injury [Unknown]
  - Chest discomfort [Unknown]
  - Abnormal behaviour [Unknown]
  - Breast enlargement [Not Recovered/Not Resolved]
  - Rash pruritic [Unknown]
  - Spinal deformity [Unknown]
  - Aggression [Unknown]
  - Crime [Unknown]
  - Dysstasia [Unknown]
  - Hypersensitivity [Unknown]
  - Abscess [Unknown]
  - Injury [Unknown]
  - Grip strength decreased [Not Recovered/Not Resolved]
  - Schizophrenia [Unknown]
  - Adactyly [Unknown]
  - Ligament injury [Unknown]
